FAERS Safety Report 25564078 (Version 2)
Quarter: 2025Q3

REPORT INFORMATION
  Report Type: Spontaneous
  Country: EU (occurrence: EU)
  Receive Date: 20250716
  Receipt Date: 20250801
  Transmission Date: 20251020
  Serious: Yes (Hospitalization, Other)
  Sender: BRISTOL-MYERS SQUIBB COMPANY
  Company Number: None

PATIENT
  Age: 68 Year
  Sex: Male
  Weight: 60 kg

DRUGS (3)
  1. OPDIVO [Suspect]
     Active Substance: NIVOLUMAB
     Indication: Metastatic malignant melanoma
     Dosage: NIVOLUMAB 1 MG/KG IV G1 Q21 + IPILIMUMAB 3 MG/KG IV G1 Q21 FOR 4 CYCLES, AS 1ST-LINE THERAPY FOR MET
     Route: 042
     Dates: start: 20250327, end: 20250327
  2. OPDIVO [Suspect]
     Active Substance: NIVOLUMAB
     Route: 042
     Dates: start: 20250409
  3. YERVOY [Suspect]
     Active Substance: IPILIMUMAB
     Indication: Metastatic malignant melanoma
     Dosage: NIVOLUMAB 1 MG/KG IV G1 Q21 + IPILIMUMAB 3 MG/KG IV G1 Q21 FOR 4 CYCLES, AS 1ST-LINE THERAPY FOR MET
     Route: 042
     Dates: start: 20250327, end: 20250327

REACTIONS (1)
  - Pemphigoid [Recovered/Resolved with Sequelae]

NARRATIVE: CASE EVENT DATE: 20250417
